FAERS Safety Report 16216400 (Version 1)
Quarter: 2019Q2

REPORT INFORMATION
  Report Type: Spontaneous
  Country: US (occurrence: US)
  Receive Date: 20190419
  Receipt Date: 20190419
  Transmission Date: 20190711
  Serious: Yes (Hospitalization, Other)
  Sender: FDA-Public Use
  Company Number: US-APOTEX-2019AP011956

PATIENT
  Age: 32 Year
  Sex: Female

DRUGS (1)
  1. TIZANIDINE. [Suspect]
     Active Substance: TIZANIDINE
     Indication: WITHDRAWAL SYNDROME
     Dosage: UNK, 20 TO 30 TABLETS, 80 TO 120 MG
     Route: 065

REACTIONS (5)
  - Self-medication [Unknown]
  - Drug abuse [Unknown]
  - Shock [Recovered/Resolved]
  - Bradycardia [Unknown]
  - Hypotension [Unknown]
